FAERS Safety Report 16577020 (Version 1)
Quarter: 2019Q3

REPORT INFORMATION
  Report Type: Spontaneous
  Country: US (occurrence: US)
  Receive Date: 20190716
  Receipt Date: 20190716
  Transmission Date: 20191004
  Serious: No
  Sender: FDA-Public Use
  Company Number: US-GLENMARK PHARMACEUTICALS-2019GMK041471

PATIENT

DRUGS (3)
  1. NYSTATIN AND TRIAMCINOLONE ACETONIDE OINTMENT USP [Suspect]
     Active Substance: NYSTATIN\TRIAMCINOLONE ACETONIDE
     Indication: SKIN DISORDER
     Dosage: UNK, QID
     Route: 061
     Dates: start: 20180719
  2. NYSTATIN AND TRIAMCINOLONE ACETONIDE OINTMENT USP [Suspect]
     Active Substance: NYSTATIN\TRIAMCINOLONE ACETONIDE
     Indication: PRURITUS
  3. NYSTATIN AND TRIAMCINOLONE ACETONIDE OINTMENT USP [Suspect]
     Active Substance: NYSTATIN\TRIAMCINOLONE ACETONIDE
     Indication: DISCHARGE

REACTIONS (2)
  - Disease recurrence [Unknown]
  - Product use issue [Unknown]

NARRATIVE: CASE EVENT DATE: 20180719
